FAERS Safety Report 14753799 (Version 1)
Quarter: 2018Q2

REPORT INFORMATION
  Report Type: Spontaneous
  Country: US (occurrence: US)
  Receive Date: 20180412
  Receipt Date: 20180412
  Transmission Date: 20180711
  Serious: Yes (Other)
  Sender: FDA-Public Use
  Company Number: US-ELI_LILLY_AND_COMPANY-US201804001928

PATIENT
  Age: 76 Year
  Sex: Male

DRUGS (1)
  1. ALIMTA [Suspect]
     Active Substance: PEMETREXED DISODIUM
     Indication: LUNG CARCINOMA CELL TYPE UNSPECIFIED STAGE IV
     Dosage: UNK, UNKNOWN
     Route: 042

REACTIONS (5)
  - Pancreatic disorder [Recovered/Resolved]
  - Limb mass [Unknown]
  - Skin discolouration [Unknown]
  - Hypoaesthesia [Unknown]
  - Skin discolouration [Unknown]

NARRATIVE: CASE EVENT DATE: 201803
